FAERS Safety Report 4827781-7 (Version None)
Quarter: 2005Q4

REPORT INFORMATION
  Report Type: 
  Country: None (occurrence: None)
  Receive Date: 20051110
  Receipt Date: 20051031
  Transmission Date: 20060501
  Serious: Yes (Death)
  Sender: FDA-Public Use
  Company Number: HQ3086401NOV2000

PATIENT
  Age: 63 Year
  Sex: Male

DRUGS (2)
  1. ETODOLAC [Suspect]
     Indication: RHEUMATOID ARTHRITIS
     Dosage: 300 MG 3X PER 1 DAY,  ORAL
     Route: 048
     Dates: start: 19900101
  2. VASOTEC [Concomitant]

REACTIONS (8)
  - ASTHENIA [None]
  - ASTHMA [None]
  - DIZZINESS [None]
  - DYSPNOEA [None]
  - EMPHYSEMA [None]
  - HYPOTENSION [None]
  - PALLOR [None]
  - RESPIRATORY ARREST [None]
